FAERS Safety Report 19749166 (Version 1)
Quarter: 2021Q3

REPORT INFORMATION
  Report Type: Spontaneous
  Country: US (occurrence: US)
  Receive Date: 20210826
  Receipt Date: 20210826
  Transmission Date: 20211014
  Serious: No
  Sender: FDA-Public Use
  Company Number: US-AMGEN-USASP2021127366

PATIENT
  Age: 64 Year
  Sex: Female

DRUGS (11)
  1. ETANERCEPT [Suspect]
     Active Substance: ETANERCEPT
     Indication: OFF LABEL USE
  2. CYCLOSPORINE. [Concomitant]
     Active Substance: CYCLOSPORINE
  3. ALLOPURINOL. [Concomitant]
     Active Substance: ALLOPURINOL
  4. MINOCYCLINE [Concomitant]
     Active Substance: MINOCYCLINE HYDROCHLORIDE
  5. INFLIXIMAB [Suspect]
     Active Substance: INFLIXIMAB
     Indication: NEURODERMATITIS
     Dosage: UNK
     Route: 065
  6. FLUTAMIDE. [Concomitant]
     Active Substance: FLUTAMIDE
  7. PREDNISONE. [Concomitant]
     Active Substance: PREDNISONE
  8. INFLIXIMAB [Suspect]
     Active Substance: INFLIXIMAB
     Indication: OFF LABEL USE
  9. ETANERCEPT [Suspect]
     Active Substance: ETANERCEPT
     Indication: NEURODERMATITIS
     Route: 065
  10. METHOTREXATE. [Concomitant]
     Active Substance: METHOTREXATE
  11. MYCOPHENOLATE MOFETIL. [Concomitant]
     Active Substance: MYCOPHENOLATE MOFETIL

REACTIONS (3)
  - Drug resistance [Unknown]
  - Off label use [Unknown]
  - Angiolymphoid hyperplasia with eosinophilia [Unknown]
